FAERS Safety Report 9572328 (Version 2)
Quarter: 2013Q4

REPORT INFORMATION
  Report Type: Spontaneous
  Country: US (occurrence: US)
  Receive Date: 20131001
  Receipt Date: 20131022
  Transmission Date: 20140711
  Serious: Yes (Other)
  Sender: FDA-Public Use
  Company Number: ALCN2013US004912

PATIENT
  Sex: 0

DRUGS (1)
  1. BSS [Suspect]
     Indication: INTRAOCULAR LENS IMPLANT
     Dosage: 1 DF, UNK
     Route: 031
     Dates: start: 201309, end: 201309

REACTIONS (1)
  - Endophthalmitis [Not Recovered/Not Resolved]
